FAERS Safety Report 13855764 (Version 2)
Quarter: 2018Q3

REPORT INFORMATION
  Report Type: Spontaneous
  Country: US (occurrence: US)
  Receive Date: 20170810
  Receipt Date: 20180828
  Transmission Date: 20181010
  Serious: Yes (Hospitalization, Other)
  Sender: FDA-Public Use
  Company Number: US-SA-2017SA145225

PATIENT
  Age: 52 Year
  Sex: Female

DRUGS (1)
  1. LANTUS SOLOSTAR [Suspect]
     Active Substance: INSULIN GLARGINE
     Indication: TYPE 2 DIABETES MELLITUS
     Dosage: 100 U, QD
     Route: 058
     Dates: start: 2011

REACTIONS (6)
  - Hospitalisation [Recovered/Resolved]
  - Neuropathy peripheral [Not Recovered/Not Resolved]
  - Renal disorder [Unknown]
  - Product use issue [Unknown]
  - Retinitis pigmentosa [Unknown]
  - Visual impairment [Not Recovered/Not Resolved]

NARRATIVE: CASE EVENT DATE: 201706
